FAERS Safety Report 4982468-5 (Version None)
Quarter: 2006Q1

REPORT INFORMATION
  Report Type: 
  Country: None (occurrence: None)
  Receive Date: 20060227
  Receipt Date: 20050901
  Transmission Date: 20060701
  Serious: Yes (Hospitalization)
  Sender: FDA-Public Use
  Company Number: WAES 0509USA01001

PATIENT
  Age: 57 Year
  Sex: Female
  Weight: 50.8029 kg

DRUGS (4)
  1. ZOCOR [Suspect]
     Indication: BLOOD CHOLESTEROL INCREASED
     Dosage: PO
     Route: 048
     Dates: start: 20020101, end: 20020101
  2. CLIMARA [Concomitant]
  3. VIOXX [Concomitant]
  4. ASPIRIN [Concomitant]

REACTIONS (1)
  - ADVERSE DRUG REACTION [None]
